FAERS Safety Report 19421269 (Version 2)
Quarter: 2022Q1

REPORT INFORMATION
  Report Type: Spontaneous
  Country: CA (occurrence: None)
  Receive Date: 20210616
  Receipt Date: 20220208
  Transmission Date: 20220423
  Serious: Yes (Other)
  Sender: FDA-Public Use
  Company Number: CA-ROCHE-2847434

PATIENT
  Age: 68 Year
  Sex: Female

DRUGS (2)
  1. RITUXIMAB [Suspect]
     Active Substance: RITUXIMAB
     Indication: Pemphigoid
     Dosage: CONCENTRATE FOR SOLUTION FOR INFUSION
     Route: 042
  2. RITUXIMAB [Suspect]
     Active Substance: RITUXIMAB
     Route: 042

REACTIONS (4)
  - Cardiac failure chronic [Unknown]
  - Lymphadenopathy [Unknown]
  - Malaise [Unknown]
  - Product use issue [Unknown]
